FAERS Safety Report 11157719 (Version 4)
Quarter: 2015Q3

REPORT INFORMATION
  Report Type: Spontaneous
  Country: US (occurrence: None)
  Receive Date: 20150601
  Receipt Date: 20150724
  Transmission Date: 20151125
  Serious: Yes (Life-Threatening, Hospitalization, Other)
  Sender: FDA-Public Use
  Company Number: ADR-2015-01016

PATIENT
  Age: 23 Year
  Sex: Male
  Weight: 42 kg

DRUGS (9)
  1. DILANTIN [Suspect]
     Active Substance: PHENYTOIN
     Dosage: 50 MG 5 TABS AT BEDTIME
  2. MIRALAX [Suspect]
     Active Substance: POLYETHYLENE GLYCOL 3350
  3. HYDROXYZINE HCL [Suspect]
     Active Substance: HYDROXYZINE HYDROCHLORIDE
     Dosage: 10 MG THREE TIMES DAILY AS NEEDED
  4. KEPPRA [Suspect]
     Active Substance: LEVETIRACETAM
     Dosage: 100MG/ML 1500MG EVERY 12 HOURS
  5. ORAL BACLOFEN [Suspect]
     Active Substance: BACLOFEN
  6. LIORESAL [Suspect]
     Active Substance: BACLOFEN
     Indication: MUSCLE SPASTICITY
     Dates: start: 20150518
  7. VIMPAT [Suspect]
     Active Substance: LACOSAMIDE
     Dosage: 1 TAB TWICE DAILY
  8. ATARAX [Suspect]
     Active Substance: HYDROXYZINE\HYDROXYZINE HYDROCHLORIDE
  9. ENEMEEZ [Suspect]
     Active Substance: DOCUSATE SODIUM

REACTIONS (25)
  - Pain [None]
  - Muscle spasticity [None]
  - Muscle spasms [None]
  - Device battery issue [None]
  - Post procedural complication [None]
  - Device physical property issue [None]
  - Muscle tightness [None]
  - Drug withdrawal syndrome [None]
  - Therapeutic response decreased [None]
  - Device alarm issue [None]
  - Device kink [None]
  - Withdrawal syndrome [None]
  - Respiratory depression [None]
  - Condition aggravated [None]
  - Musculoskeletal stiffness [None]
  - Respiratory distress [None]
  - Incorrect drug administration rate [None]
  - Device material issue [None]
  - Tremor [None]
  - Device power source issue [None]
  - Body temperature increased [None]
  - Hepatic enzyme increased [None]
  - Renal function test abnormal [None]
  - Seizure [None]
  - Hypertonia [None]
